FAERS Safety Report 7632365-1 (Version None)
Quarter: 2011Q3

REPORT INFORMATION
  Report Type: 
  Country: None (occurrence: None)
  Receive Date: 20110725
  Receipt Date: 20100818
  Transmission Date: 20111222
  Serious: No
  Sender: FDA-Public Use
  Company Number: US-BRISTOL-MYERS SQUIBB COMPANY-15245574

PATIENT
  Age: 88 Year
  Sex: Female
  Weight: 58 kg

DRUGS (7)
  1. LANOXIN [Concomitant]
  2. COUMADIN [Suspect]
     Dosage: ATLEAST 3 YEARS OR MORE
  3. WARFARIN SODIUM [Suspect]
  4. CENTRUM SILVER [Concomitant]
  5. HYDROCHLOROTHIAZIDE [Concomitant]
  6. VITAMIN B-12 [Concomitant]
     Dosage: LAST DECEMBER 2009, FEBRUARY 2010, AND ANOTHER ONE A LITTLE AFTER
  7. DYNACIRC [Concomitant]

REACTIONS (2)
  - NAUSEA [None]
  - PROTHROMBIN TIME PROLONGED [None]
